FAERS Safety Report 7297264-6 (Version None)
Quarter: 2011Q1

REPORT INFORMATION
  Report Type: 
  Country: None (occurrence: None)
  Receive Date: 20110216
  Receipt Date: 20110203
  Transmission Date: 20110831
  Serious: Yes (Other)
  Sender: FDA-Public Use
  Company Number: US-ELI_LILLY_AND_COMPANY-US201102001735

PATIENT
  Age: 70 Year
  Sex: Male

DRUGS (4)
  1. VITAMIN B-12 [Concomitant]
  2. ALIMTA [Suspect]
     Indication: NON-SMALL CELL LUNG CANCER
     Dosage: 500 MG/M2, UNK
     Route: 042
     Dates: start: 20110131, end: 20110131
  3. DEXAMETHASONE [Concomitant]
  4. FOLIC ACID [Concomitant]

REACTIONS (2)
  - THROAT TIGHTNESS [None]
  - BLOOD PRESSURE DECREASED [None]
